FAERS Safety Report 17456899 (Version 1)
Quarter: 2020Q1

REPORT INFORMATION
  Report Type: Spontaneous
  Country: US (occurrence: US)
  Receive Date: 20200225
  Receipt Date: 20200225
  Transmission Date: 20200409
  Serious: Yes (Death, Life-Threatening, Hospitalization)
  Sender: FDA-Public Use
  Company Number: US-ELI_LILLY_AND_COMPANY-US202002010478

PATIENT
  Age: 65 Year
  Sex: Male

DRUGS (5)
  1. CLOZAPINE. [Interacting]
     Active Substance: CLOZAPINE
     Indication: SCHIZOPHRENIA
     Dosage: UNK, DAILY
     Route: 065
  2. OLANZAPINE. [Suspect]
     Active Substance: OLANZAPINE
     Indication: SCHIZOPHRENIA
     Dosage: 30 MG, DAILY
     Route: 065
  3. OLANZAPINE. [Interacting]
     Active Substance: OLANZAPINE
     Dosage: 10 MG, DAILY
     Route: 065
  4. CLOZAPINE. [Interacting]
     Active Substance: CLOZAPINE
     Dosage: 100 MG, DAILY
     Route: 065
  5. DOCUSATE SODIUM. [Concomitant]
     Active Substance: DOCUSATE SODIUM
     Indication: PROPHYLAXIS
     Dosage: 100 MG, BID
     Route: 065

REACTIONS (8)
  - Tachycardia [Unknown]
  - Overdose [Unknown]
  - Drug interaction [Unknown]
  - Hypotension [Unknown]
  - Tachypnoea [Unknown]
  - Diarrhoea [Unknown]
  - Malaise [Unknown]
  - Ileus paralytic [Fatal]
